FAERS Safety Report 10728638 (Version 2)
Quarter: 2015Q2

REPORT INFORMATION
  Report Type: Spontaneous
  Country: US (occurrence: US)
  Receive Date: 20150122
  Receipt Date: 20150422
  Transmission Date: 20150821
  Serious: Yes (Hospitalization, Other)
  Sender: FDA-Public Use
  Company Number: US-AMGEN-USASP2015004233

PATIENT
  Age: 70 Year
  Sex: Female

DRUGS (2)
  1. ENBREL [Suspect]
     Active Substance: ETANERCEPT
     Indication: PSORIATIC ARTHROPATHY
     Dosage: 50 MG, 2 TIMES/WK
     Route: 065
     Dates: start: 20090630
  2. ENBREL [Suspect]
     Active Substance: ETANERCEPT
     Indication: PUSTULAR PSORIASIS

REACTIONS (9)
  - Nasopharyngitis [Not Recovered/Not Resolved]
  - Streptococcal infection [Recovered/Resolved]
  - Musculoskeletal chest pain [Recovering/Resolving]
  - Asthma [Not Recovered/Not Resolved]
  - Productive cough [Recovering/Resolving]
  - Injection site pain [Recovered/Resolved]
  - Cataract [Recovered/Resolved]
  - Eye injury [Recovered/Resolved]
  - Bronchitis [Not Recovered/Not Resolved]

NARRATIVE: CASE EVENT DATE: 2010
